FAERS Safety Report 9002273 (Version 1)
Quarter: 2012Q4

REPORT INFORMATION
  Report Type: Spontaneous
  Country: US (occurrence: None)
  Receive Date: 20121115
  Receipt Date: 20121115
  Transmission Date: 20130627
  Serious: Yes (Other)
  Sender: FDA-Public Use
  Company Number: 54973 AE # 1095

PATIENT
  Age: 92 Year
  Sex: Female

DRUGS (1)
  1. HYDRASTIS CANADENSIS EXTRACT [Suspect]
     Indication: SINUS CONGESTION
     Dosage: for many years

REACTIONS (1)
  - Epistaxis [None]
